FAERS Safety Report 5060728-X (Version None)
Quarter: 2006Q3

REPORT INFORMATION
  Report Type: 
  Country: None (occurrence: None)
  Receive Date: 20060721
  Receipt Date: 20060721
  Transmission Date: 20061208
  Serious: Yes (Death, Life-Threatening, Hospitalization)
  Sender: FDA-Public Use
  Company Number: None

PATIENT
  Sex: Female
  Weight: 79.3795 kg

DRUGS (2)
  1. KETEK [Suspect]
     Indication: SINUSITIS
     Dates: start: 20060301, end: 20060306
  2. COLCHICINE [Suspect]
     Indication: GOUT
     Dates: start: 20060321, end: 20060324

REACTIONS (4)
  - APLASTIC ANAEMIA [None]
  - CLOSTRIDIUM COLITIS [None]
  - HAEMORRHAGE INTRACRANIAL [None]
  - PANCYTOPENIA [None]
